FAERS Safety Report 8803322 (Version 1)
Quarter: 2012Q4

REPORT INFORMATION
  Report Type: 
  Country: US (occurrence: US)
  Receive Date: 20120924
  Receipt Date: 20120924
  Transmission Date: 20130627
  Serious: Yes (Other)
  Sender: FDA-Public Use
  Company Number: US-ASTRAZENECA-2012SE72334

PATIENT
  Sex: Female

DRUGS (2)
  1. SEROQUEL XR [Suspect]
     Indication: INSOMNIA
     Route: 048
  2. SEROQUEL XR [Suspect]
     Indication: INSOMNIA
     Route: 048
     Dates: start: 20120911, end: 20120911

REACTIONS (5)
  - Overdose [Unknown]
  - Loss of consciousness [Unknown]
  - Off label use [Unknown]
  - Balance disorder [Unknown]
  - Oropharyngeal pain [Unknown]
